FAERS Safety Report 12926149 (Version 2)
Quarter: 2017Q1

REPORT INFORMATION
  Report Type: Spontaneous
  Country: US (occurrence: US)
  Receive Date: 20161108
  Receipt Date: 20170209
  Transmission Date: 20170428
  Serious: No
  Sender: FDA-Public Use
  Company Number: US-SA-2016SA173561

PATIENT
  Age: 66 Year
  Sex: Male

DRUGS (12)
  1. PRALUENT [Suspect]
     Active Substance: ALIROCUMAB
     Indication: TYPE IIA HYPERLIPIDAEMIA
     Route: 058
     Dates: start: 20160506
  2. BACTRIM [Concomitant]
     Active Substance: SULFAMETHOXAZOLE\TRIMETHOPRIM
  3. SINGULAIR [Concomitant]
     Active Substance: MONTELUKAST SODIUM
  4. COREG [Concomitant]
     Active Substance: CARVEDILOL
  5. ALIROCUMAB PREFILLED PEN [Concomitant]
     Active Substance: ALIROCUMAB
     Dates: start: 20160506
  6. AMOXICILLIN. [Concomitant]
     Active Substance: AMOXICILLIN
  7. PRILOSEC [Concomitant]
     Active Substance: OMEPRAZOLE MAGNESIUM
  8. SYNTHROID [Concomitant]
     Active Substance: LEVOTHYROXINE SODIUM
  9. ASPIRIN. [Concomitant]
     Active Substance: ASPIRIN
  10. TACROLIMUS. [Concomitant]
     Active Substance: TACROLIMUS
  11. ACICLOVIR [Concomitant]
     Active Substance: ACYCLOVIR
  12. RANEXA [Concomitant]
     Active Substance: RANOLAZINE

REACTIONS (1)
  - Muscle spasms [Unknown]

NARRATIVE: CASE EVENT DATE: 20160916
